FAERS Safety Report 23758427 (Version 1)
Quarter: 2024Q2

REPORT INFORMATION
  Report Type: Spontaneous
  Country: US (occurrence: US)
  Receive Date: 20240418
  Receipt Date: 20240418
  Transmission Date: 20240715
  Serious: Yes (Other)
  Sender: FDA-Public Use
  Company Number: US-PROVEPHARM, INC.-2024-APO-000024

PATIENT

DRUGS (1)
  1. TRANEXAMIC ACID [Suspect]
     Active Substance: TRANEXAMIC ACID
     Indication: Gastrointestinal haemorrhage
     Route: 065

REACTIONS (2)
  - Acute myocardial infarction [Unknown]
  - Off label use [Unknown]
